FAERS Safety Report 25417705 (Version 1)
Quarter: 2025Q2

REPORT INFORMATION
  Report Type: Spontaneous
  Country: US (occurrence: US)
  Receive Date: 20250610
  Receipt Date: 20250610
  Transmission Date: 20250717
  Serious: No
  Sender: BAYER HEALTHCARE LLC
  Company Number: US-BAYER-2025A074297

PATIENT
  Age: 88 Year
  Sex: Male

DRUGS (3)
  1. MIRALAX [Suspect]
     Active Substance: POLYETHYLENE GLYCOL 3350
     Indication: Constipation prophylaxis
     Route: 048
  2. MORPHINE [Concomitant]
     Active Substance: MORPHINE
     Route: 048
  3. LASIX [Concomitant]
     Active Substance: FUROSEMIDE

REACTIONS (3)
  - Incorrect dose administered [Unknown]
  - Intentional product misuse [Unknown]
  - Product use issue [Unknown]
